FAERS Safety Report 7524899-5 (Version None)
Quarter: 2011Q2

REPORT INFORMATION
  Report Type: 
  Country: None (occurrence: None)
  Receive Date: 20110606
  Receipt Date: 20110527
  Transmission Date: 20111010
  Serious: Yes (Disabling, Other)
  Sender: FDA-Public Use
  Company Number: AR-AMGEN-ARGSP2011022654

PATIENT
  Age: 60 Year
  Sex: Male
  Weight: 60 kg

DRUGS (5)
  1. SERTRALINE HYDROCHLORIDE [Suspect]
     Indication: DEPRESSION
  2. CARVEDILOL [Concomitant]
     Dosage: UNK
     Route: 048
     Dates: start: 19900101
  3. QUINAPRIL HCL [Concomitant]
     Dosage: UNK
     Route: 048
  4. ENBREL [Suspect]
     Indication: RHEUMATOID ARTHRITIS
     Dosage: 25 MG, 2X/WEEK
     Route: 058
     Dates: start: 20040901, end: 20110301
  5. SERTRALINE HYDROCHLORIDE [Suspect]
     Indication: PANIC ATTACK
     Dosage: UNK

REACTIONS (7)
  - DEPRESSION [None]
  - CEREBROVASCULAR ACCIDENT [None]
  - PANIC ATTACK [None]
  - PARKINSON'S DISEASE [None]
  - ABASIA [None]
  - ANAL SPHINCTER ATONY [None]
  - BLADDER SPHINCTER ATONY [None]
